FAERS Safety Report 12682999 (Version 1)
Quarter: 2016Q3

REPORT INFORMATION
  Report Type: Spontaneous
  Country: US (occurrence: None)
  Receive Date: 20160824
  Receipt Date: 20160824
  Transmission Date: 20161109
  Serious: Yes (Disabling)
  Sender: FDA-Public Use
  Company Number: None

PATIENT
  Age: 42 Year
  Sex: Female
  Weight: 43.09 kg

DRUGS (9)
  1. PROLIA [Suspect]
     Active Substance: DENOSUMAB
     Indication: OSTEOPOROSIS
     Dosage: EVERY 6 MONTHS INTO THE MUSCLE
     Route: 030
     Dates: start: 20150613, end: 20160630
  2. LACTAID [Concomitant]
     Active Substance: LACTASE
  3. FISH OIL [Concomitant]
     Active Substance: FISH OIL
  4. VITAMIN B1 [Concomitant]
     Active Substance: THIAMINE HYDROCHLORIDE
  5. ALPRAZOLAM. [Concomitant]
     Active Substance: ALPRAZOLAM
  6. COQ10 [Concomitant]
     Active Substance: UBIDECARENONE
  7. POTASSIUM [Concomitant]
     Active Substance: POTASSIUM
  8. MULTIVITAMIN [Concomitant]
     Active Substance: VITAMINS
  9. CALCIUM AND VITAMIN D1 [Concomitant]

REACTIONS (4)
  - Pain in jaw [None]
  - Pain [None]
  - Skin exfoliation [None]
  - Bone pain [None]

NARRATIVE: CASE EVENT DATE: 20151213
